FAERS Safety Report 10403158 (Version 4)
Quarter: 2014Q3

REPORT INFORMATION
  Report Type: Report from Study
  Country: US (occurrence: US)
  Receive Date: 20140822
  Receipt Date: 20140929
  Transmission Date: 20150326
  Serious: Yes (Hospitalization)
  Sender: FDA-Public Use
  Company Number: US-BAYER-2014-078496

PATIENT
  Age: 66 Year
  Sex: Male

DRUGS (2)
  1. NEXAVAR [Suspect]
     Active Substance: SORAFENIB
     Indication: RENAL CANCER
     Dosage: 400 MG, BID
     Route: 048
     Dates: start: 20140422, end: 20140710
  2. NEXAVAR [Suspect]
     Active Substance: SORAFENIB
     Indication: RENAL CANCER
     Dosage: 200 MG, BID
     Route: 048
     Dates: start: 20140811

REACTIONS (14)
  - Pyrexia [None]
  - Fatigue [None]
  - Insomnia [Not Recovered/Not Resolved]
  - Decreased appetite [None]
  - Intestinal obstruction [None]
  - Skin mass [None]
  - Night sweats [None]
  - Skin irritation [None]
  - Pruritus [None]
  - Diarrhoea [None]
  - Weight decreased [None]
  - Rash generalised [Not Recovered/Not Resolved]
  - Erythema [None]
  - Blood pressure systolic increased [None]

NARRATIVE: CASE EVENT DATE: 20140613
